FAERS Safety Report 20231091 (Version 2)
Quarter: 2022Q1

REPORT INFORMATION
  Report Type: Report from Study
  Country: DE (occurrence: DE)
  Receive Date: 20211227
  Receipt Date: 20220208
  Transmission Date: 20220424
  Serious: Yes (Other)
  Sender: FDA-Public Use
  Company Number: DE-CELLTRION INC.-2021DE017507

PATIENT

DRUGS (5)
  1. HERZUMA [Suspect]
     Active Substance: TRASTUZUMAB-PKRB
     Indication: Breast cancer
     Dosage: 688 MG; THE LAST DOSE TAKEN PRIOR TO THE EVENT FOR TRASTUZUMAB (HERZUMA) WAS 30/SEP/2020 AT A DOSE 5
     Route: 065
     Dates: start: 20200708, end: 20210707
  2. PERTUZUMAB [Suspect]
     Active Substance: PERTUZUMAB
     Indication: Breast cancer
     Dosage: 840 MG, THE LAST DOSE TAKEN PRIOR TO THE EVENT FOR PERTUZUMAB WAS 30/SEP/2020 AT A DOSE 420 MG
     Route: 065
     Dates: start: 20200708, end: 20210707
  3. PACLITAXEL [Suspect]
     Active Substance: PACLITAXEL
     Indication: Breast cancer
     Dosage: 160 MG, THE LAST DOSE TAKEN PRIOR TO THE EVENT FOR PACLITAXEL WAS 16/SEP/2020 AT A DOSE 159MG.
     Route: 065
     Dates: start: 20200708, end: 20200916
  4. FOSFOMYCIN AL [Concomitant]
     Indication: Product used for unknown indication
     Dosage: 3 G
     Route: 048
     Dates: start: 20200819, end: 20200821
  5. FILGRASTIM [Concomitant]
     Active Substance: FILGRASTIM
     Indication: Product used for unknown indication
     Dosage: UNK
     Route: 058
     Dates: start: 20200723, end: 202007

REACTIONS (7)
  - Polyneuropathy [Not Recovered/Not Resolved]
  - Onycholysis [Recovering/Resolving]
  - Rash [Not Recovered/Not Resolved]
  - Fatigue [Not Recovered/Not Resolved]
  - Dry skin [Not Recovered/Not Resolved]
  - Hot flush [Not Recovered/Not Resolved]
  - Underdose [Unknown]

NARRATIVE: CASE EVENT DATE: 20200916
